FAERS Safety Report 5393859-5 (Version None)
Quarter: 2007Q3

REPORT INFORMATION
  Report Type: 
  Country: None (occurrence: None)
  Receive Date: 20070723
  Receipt Date: 20070717
  Transmission Date: 20080115
  Serious: No
  Sender: FDA-Public Use
  Company Number: B0468958A

PATIENT
  Age: 12 Year

DRUGS (1)
  1. WELLVONE [Suspect]
     Dosage: 1500MG THREE TIMES PER WEEK
     Route: 048

REACTIONS (1)
  - NO ADVERSE DRUG REACTION [None]
